FAERS Safety Report 20601463 (Version 1)
Quarter: 2022Q1

REPORT INFORMATION
  Report Type: Spontaneous
  Country: US (occurrence: None)
  Receive Date: 20220315
  Receipt Date: 20220315
  Transmission Date: 20220423
  Serious: Yes (Other)
  Sender: FDA-Public Use
  Company Number: None

PATIENT
  Age: 52 Year
  Sex: Female
  Weight: 83.25 kg

DRUGS (2)
  1. NITROFURANTOIN MONOHYDRATE MACROCRYSTALS [Suspect]
     Active Substance: NITROFURANTOIN\NITROFURANTOIN MONOHYDRATE
     Indication: Urinary tract infection
     Dosage: FREQUENCY : TWICE A DAY;?
     Route: 048
     Dates: start: 20220309, end: 20220313
  2. CANNABIS SATIVA SUBSP. INDICA TOP [Concomitant]
     Active Substance: CANNABIS SATIVA SUBSP. INDICA TOP

REACTIONS (28)
  - Headache [None]
  - Chills [None]
  - Urinary tract infection [None]
  - Tremor [None]
  - Body temperature decreased [None]
  - Anxiety [None]
  - Swelling face [None]
  - Peripheral swelling [None]
  - Arthralgia [None]
  - Gait disturbance [None]
  - Chest pain [None]
  - Arthralgia [None]
  - Tenderness [None]
  - Urticaria [None]
  - Pruritus [None]
  - Hypoaesthesia [None]
  - Chromaturia [None]
  - Abnormal sensation in eye [None]
  - Skin exfoliation [None]
  - Hypophagia [None]
  - Nausea [None]
  - Asthenia [None]
  - Therapy cessation [None]
  - Dyspnoea [None]
  - Yellow skin [None]
  - Scleral discolouration [None]
  - Erythema [None]
  - Pulmonary pain [None]

NARRATIVE: CASE EVENT DATE: 20220309
